FAERS Safety Report 6951029-0 (Version None)
Quarter: 2010Q3

REPORT INFORMATION
  Report Type: 
  Country: None (occurrence: None)
  Receive Date: 20100828
  Receipt Date: 20100308
  Transmission Date: 20110219
  Serious: No
  Sender: FDA-Public Use
  Company Number: US-ABBOTT-10P-163-0631497-00

PATIENT
  Sex: Female
  Weight: 147.55 kg

DRUGS (3)
  1. NIASPAN [Suspect]
     Indication: BLOOD CHOLESTEROL INCREASED
     Dates: start: 20100101, end: 20100218
  2. NIASPAN [Suspect]
     Dates: start: 20100219, end: 20100219
  3. NIASPAN [Suspect]
     Dates: start: 20100220

REACTIONS (3)
  - PRURITUS [None]
  - SINUSITIS [None]
  - URTICARIA [None]
